FAERS Safety Report 6123633-3 (Version None)
Quarter: 2009Q1

REPORT INFORMATION
  Report Type: 
  Country: None (occurrence: None)
  Receive Date: 20090319
  Receipt Date: 20090317
  Transmission Date: 20090719
  Serious: Yes (Death, Hospitalization, Disabling)
  Sender: FDA-Public Use
  Company Number: US-JNJFOC-20090106553

PATIENT
  Sex: Male
  Weight: 63.5 kg

DRUGS (13)
  1. FENTANYL TRANSDERMAL SYSTEM [Suspect]
     Indication: SKIN ULCER
     Route: 062
  2. FENTANYL TRANSDERMAL SYSTEM [Suspect]
     Indication: SKIN ULCER
     Route: 062
  3. COREG [Concomitant]
  4. ATACAND [Concomitant]
     Indication: HYPERTENSION
     Route: 048
     Dates: start: 20080101
  5. SPIRONOLACTONE [Concomitant]
     Indication: HYPERTENSION
     Route: 048
     Dates: start: 20080701
  6. GLIPIZIDE [Concomitant]
     Indication: DIABETES MELLITUS
     Dosage: 1 OR 2 AS NEEDED
     Route: 048
     Dates: start: 20080401
  7. PRAVASTATIN [Concomitant]
     Indication: BLOOD CHOLESTEROL ABNORMAL
     Route: 048
     Dates: start: 20080701
  8. COUMADIN [Concomitant]
     Indication: ANGIOPATHY
     Dosage: AS NEEDED PER PHYSICIAN
     Route: 048
  9. UROXATRAL [Concomitant]
     Indication: PROSTATIC DISORDER
     Route: 048
  10. PERCOCET [Concomitant]
     Indication: BREAKTHROUGH PAIN
     Dosage: AS NEEDED
     Route: 048
  11. BABY ASPRIN [Concomitant]
     Indication: ANGIOPATHY
     Route: 048
  12. LASIX [Concomitant]
  13. POTASSIUM CHLORIDE [Concomitant]

REACTIONS (10)
  - ANGIOPATHY [None]
  - APPLICATION SITE PRURITUS [None]
  - APPLICATION SITE URTICARIA [None]
  - CARDIAC FAILURE CONGESTIVE [None]
  - DEATH [None]
  - LEG AMPUTATION [None]
  - MYOCARDIAL INFARCTION [None]
  - PRURITUS [None]
  - URTICARIA [None]
  - VASCULAR GRAFT [None]
